FAERS Safety Report 9162939 (Version 3)
Quarter: 2013Q3

REPORT INFORMATION
  Report Type: Spontaneous
  Country: IE (occurrence: None)
  Receive Date: 20130214
  Receipt Date: 20130724
  Transmission Date: 20140515
  Serious: No
  Sender: FDA-Public Use
  Company Number: 2013034732

PATIENT
  Sex: Female

DRUGS (1)
  1. RHOPHYLAC [Suspect]
     Route: 030
     Dates: end: 20121109

REACTIONS (2)
  - Rhesus antibodies positive [None]
  - Maternal drugs affecting foetus [None]
